FAERS Safety Report 6556932-1 (Version None)
Quarter: 2010Q1

REPORT INFORMATION
  Report Type: 
  Country: None (occurrence: None)
  Receive Date: 20100126
  Receipt Date: 20100113
  Transmission Date: 20100710
  Serious: Yes (Other)
  Sender: FDA-Public Use
  Company Number: 1000009833

PATIENT
  Age: 20 Year
  Sex: Female
  Weight: 47 kg

DRUGS (2)
  1. CELEXA [Suspect]
     Dosage: ORAL; 40 MG (40 MG, 1 IN 1 D), ORAL
     Route: 048
  2. LINESSA 28 (TABLETS) [Suspect]
     Dosage: 1 DOSAGE FORMS (1 DOSAGE FORMS, 1 IN 1 D)

REACTIONS (3)
  - ABORTION INDUCED [None]
  - DRUG EXPOSURE DURING PREGNANCY [None]
  - PREGNANCY ON CONTRACEPTIVE [None]
